FAERS Safety Report 8788254 (Version 4)
Quarter: 2013Q2

REPORT INFORMATION
  Report Type: Spontaneous
  Country: US (occurrence: US)
  Receive Date: 20120914
  Receipt Date: 20130614
  Transmission Date: 20140414
  Serious: No
  Sender: FDA-Public Use
  Company Number: US-009507513-1208USA011636

PATIENT
  Sex: Male

DRUGS (3)
  1. PEGINTRON [Suspect]
     Indication: HEPATITIS C
     Dosage: REDIPEN
     Route: 058
     Dates: start: 20120710, end: 20130603
  2. REBETOL [Suspect]
     Indication: HEPATITIS C
     Dosage: UNK
     Route: 048
     Dates: start: 20120710
  3. TELAPREVIR [Suspect]
     Indication: HEPATITIS C
     Dosage: UNK
     Dates: start: 20120710, end: 20120929

REACTIONS (24)
  - Sleep disorder [Unknown]
  - Weight increased [Unknown]
  - Feeling hot [Unknown]
  - Formication [Unknown]
  - Malaise [Unknown]
  - Fatigue [Unknown]
  - Memory impairment [Unknown]
  - Nausea [Unknown]
  - Injection site erythema [Unknown]
  - Pyrexia [Unknown]
  - Influenza like illness [Unknown]
  - Pruritus generalised [Unknown]
  - Insomnia [Unknown]
  - Fatigue [Unknown]
  - Influenza like illness [Unknown]
  - Rash macular [Unknown]
  - Rash [Unknown]
  - Insomnia [Unknown]
  - Blister [Unknown]
  - Disturbance in attention [Unknown]
  - Fatigue [Unknown]
  - Fatigue [Unknown]
  - White blood cell count decreased [Unknown]
  - Leukopenia [Unknown]
